FAERS Safety Report 22228470 (Version 1)
Quarter: 2023Q2

REPORT INFORMATION
  Report Type: Spontaneous
  Country: BY (occurrence: BY)
  Receive Date: 20230419
  Receipt Date: 20230419
  Transmission Date: 20230722
  Serious: Yes (Life-Threatening)
  Sender: FDA-Public Use
  Company Number: BY-JNJFOC-20220761496

PATIENT
  Age: 4 Decade
  Sex: Female
  Weight: 51 kg

DRUGS (9)
  1. SIRTURO [Suspect]
     Active Substance: BEDAQUILINE FUMARATE
     Indication: Tuberculosis
     Dosage: TB DRUGS ARE INTERRUPTED EFFECTIVE FROM 11-AUG-2022.
     Route: 048
     Dates: start: 20220721
  2. PRETOMANID [Suspect]
     Active Substance: PRETOMANID
     Indication: Tuberculosis
     Dosage: TB DRUGS ARE INTERRUPTED EFFECTIVE FROM 11-AUG-2022.
     Route: 048
     Dates: start: 20220721
  3. LINEZOLID [Suspect]
     Active Substance: LINEZOLID
     Indication: Tuberculosis
     Dosage: TB DRUGS ARE INTERRUPTED EFFECTIVE FROM 11-AUG-2022.
     Route: 048
     Dates: start: 20220721
  4. MOXIFLOXACIN [Suspect]
     Active Substance: MOXIFLOXACIN
     Indication: Tuberculosis
     Route: 048
     Dates: start: 20220721, end: 20220728
  5. CLOFAZIMINE [Suspect]
     Active Substance: CLOFAZIMINE
     Indication: Tuberculosis
     Dosage: TB DRUGS ARE INTERRUPTED EFFECTIVE FROM 11-AUG-2022.
     Route: 048
     Dates: start: 20220729
  6. DEXTROSE [Concomitant]
     Active Substance: DEXTROSE\DEXTROSE MONOHYDRATE
     Route: 042
     Dates: start: 20220722, end: 20220727
  7. MONOINSULIN HR [Concomitant]
     Dosage: 12 UNITS
     Route: 042
     Dates: start: 20220722, end: 20220727
  8. PYRIDOXINE HYDROCHLORIDE [Concomitant]
     Active Substance: PYRIDOXINE HYDROCHLORIDE
     Indication: Prophylaxis
     Route: 030
     Dates: start: 20220722
  9. FOLIC ACID [Concomitant]
     Active Substance: FOLIC ACID
     Indication: Anaemia
     Route: 048
     Dates: start: 20220724

REACTIONS (1)
  - Aspartate aminotransferase increased [Recovered/Resolved]

NARRATIVE: CASE EVENT DATE: 20220721
